FAERS Safety Report 11440019 (Version 1)
Quarter: 2015Q3

REPORT INFORMATION
  Report Type: Spontaneous
  Country: US (occurrence: None)
  Receive Date: 20150831
  Receipt Date: 20150831
  Transmission Date: 20151125
  Serious: Yes (Life-Threatening, Hospitalization)
  Sender: FDA-Public Use
  Company Number: None

PATIENT
  Age: 58 Year
  Sex: Male
  Weight: 78.5 kg

DRUGS (3)
  1. IOPAMIDOL [Suspect]
     Active Substance: IOPAMIDOL
     Indication: COUGH
     Route: 042
     Dates: start: 20150307, end: 20150307
  2. IOPAMIDOL [Suspect]
     Active Substance: IOPAMIDOL
     Indication: DYSPNOEA
     Route: 042
     Dates: start: 20150307, end: 20150307
  3. IOPAMIDOL [Suspect]
     Active Substance: IOPAMIDOL
     Indication: COMPUTERISED TOMOGRAM THORAX
     Route: 042
     Dates: start: 20150307, end: 20150307

REACTIONS (3)
  - Seizure [None]
  - Hypotension [None]
  - Cardiac arrest [None]

NARRATIVE: CASE EVENT DATE: 20150307
